FAERS Safety Report 17565684 (Version 2)
Quarter: 2020Q2

REPORT INFORMATION
  Report Type: Spontaneous
  Country: US (occurrence: US)
  Receive Date: 20200320
  Receipt Date: 20200626
  Transmission Date: 20200713
  Serious: Yes (Hospitalization, Other)
  Sender: FDA-Public Use
  Company Number: US-MYLANLABS-2020M1028378

PATIENT
  Age: 27 Year
  Sex: Female
  Weight: 57 kg

DRUGS (1)
  1. EMSAM [Suspect]
     Active Substance: SELEGILINE
     Indication: MAJOR DEPRESSION
     Dosage: 6 MILLIGRAM, QD (ONE PATCH EVERY 24 HOURS)
     Route: 062

REACTIONS (5)
  - Chest pain [Unknown]
  - Movement disorder [Recovering/Resolving]
  - Dysarthria [Recovered/Resolved]
  - Syncope [Unknown]
  - Hypertension [Unknown]

NARRATIVE: CASE EVENT DATE: 20200228
